FAERS Safety Report 23552031 (Version 1)
Quarter: 2024Q1

REPORT INFORMATION
  Report Type: Spontaneous
  Country: US (occurrence: US)
  Receive Date: 20240222
  Receipt Date: 20240222
  Transmission Date: 20240410
  Serious: Yes (Death)
  Sender: FDA-Public Use
  Company Number: US-ALVOGEN-2024093119

PATIENT
  Sex: Male

DRUGS (2)
  1. TERIPARATIDE [Suspect]
     Active Substance: TERIPARATIDE
     Indication: Osteoporosis
     Dosage: 20 MCG, DAILY?STRENGTH: 250 MCG/ML
     Route: 058
     Dates: start: 202301
  2. Prasco [Concomitant]
     Indication: Product used for unknown indication

REACTIONS (1)
  - Death [Fatal]
